FAERS Safety Report 9643062 (Version 1)
Quarter: 2013Q4

REPORT INFORMATION
  Report Type: Spontaneous
  Country: FR (occurrence: None)
  Receive Date: 20131022
  Receipt Date: 20131022
  Transmission Date: 20140711
  Serious: Yes (Disabling)
  Sender: FDA-Public Use
  Company Number: COL_14501_2013

PATIENT
  Age: 42 Year
  Sex: Male

DRUGS (1)
  1. COLGATE MAX FRESH COOL MINT TOOTHPASTE [Suspect]
     Indication: DENTAL CARIES
     Dosage: PEA SIZED AMOUNT BID PO
     Route: 048
     Dates: start: 20131007, end: 20131010

REACTIONS (3)
  - Paraesthesia oral [None]
  - Oral discomfort [None]
  - Aphagia [None]
